FAERS Safety Report 6997521-4 (Version None)
Quarter: 2010Q3

REPORT INFORMATION
  Report Type: 
  Country: None (occurrence: None)
  Receive Date: 20100918
  Receipt Date: 20091103
  Transmission Date: 20110219
  Serious: No
  Sender: FDA-Public Use
  Company Number: US-WYE-H12033709

PATIENT
  Age: 61 Year
  Sex: Female
  Weight: 90.8 kg

DRUGS (6)
  1. ADVIL PM [Suspect]
     Indication: BACK PAIN
     Dosage: 2 CAPLETS BEFORE SLEEP
     Route: 048
     Dates: start: 20091029, end: 20091030
  2. FOSAMAX [Concomitant]
  3. VYTORIN [Concomitant]
  4. DOXEPIN HCL [Concomitant]
  5. ADVIL LIQUI-GELS [Suspect]
     Indication: BACK PAIN
     Dosage: 2 TO 4 TABLETS EVERY 6 HOURS
     Route: 048
     Dates: start: 20091029, end: 20091030
  6. NEXIUM [Concomitant]

REACTIONS (3)
  - ABDOMINAL PAIN [None]
  - GASTRIC DISORDER [None]
  - OVERDOSE [None]
